FAERS Safety Report 16834336 (Version 4)
Quarter: 2019Q3

REPORT INFORMATION
  Report Type: Spontaneous
  Country: TH (occurrence: TH)
  Receive Date: 20190920
  Receipt Date: 20190930
  Transmission Date: 20191005
  Serious: Yes (Other)
  Sender: FDA-Public Use
  Company Number: PHHY2019TH214957

PATIENT
  Age: 71 Year
  Sex: Female

DRUGS (52)
  1. RIVASTIGMINE. [Suspect]
     Active Substance: RIVASTIGMINE
     Dosage: 3 MG, BID (1X2 PC)
     Route: 048
     Dates: start: 20190517
  2. ROPINIROLE. [Concomitant]
     Active Substance: ROPINIROLE
     Indication: PRODUCT USED FOR UNKNOWN INDICATION
     Dosage: 4 MG, QD(1X1 PC)
     Route: 048
     Dates: start: 201902
  3. ROPINIROLE. [Concomitant]
     Active Substance: ROPINIROLE
     Dosage: 4 MG, QD (1X1 PC)
     Route: 048
     Dates: start: 20190517
  4. FLUOXETINE [Concomitant]
     Active Substance: FLUOXETINE HYDROCHLORIDE
     Indication: PRODUCT USED FOR UNKNOWN INDICATION
     Dosage: 20 MG, QD (1X1 PC)
     Route: 048
     Dates: start: 201903
  5. ENTACAPONE. [Suspect]
     Active Substance: ENTACAPONE
     Dosage: 200 MG, QID (1 TAB AT 8,12,16,20)
     Route: 048
     Dates: start: 20190517
  6. ENTACAPONE. [Suspect]
     Active Substance: ENTACAPONE
     Dosage: 200 MG, QID (1 TAB AT 8,12,16,20)
     Route: 048
     Dates: start: 20190625
  7. LAMOTRIGINE. [Concomitant]
     Active Substance: LAMOTRIGINE
     Dosage: 100 MG, QHS  (1X1 HS)
     Route: 048
     Dates: start: 20190625
  8. QUETIAPINE. [Concomitant]
     Active Substance: QUETIAPINE
     Indication: PRODUCT USED FOR UNKNOWN INDICATION
     Dosage: 1 DF, QHS (1X1 HS)
     Route: 048
     Dates: start: 20190517
  9. RIVASTIGMINE. [Suspect]
     Active Substance: RIVASTIGMINE
     Dosage: 3 MG, BID (1X2 PC)
     Route: 048
     Dates: start: 201902
  10. ROPINIROLE. [Concomitant]
     Active Substance: ROPINIROLE
     Dosage: 4 MG, QD (1X1 PC)
     Route: 048
     Dates: start: 20190517
  11. CLONAZEPAM. [Concomitant]
     Active Substance: CLONAZEPAM
     Dosage: 2 MG, QHS (1X1 HS)
     Route: 048
     Dates: start: 20190517
  12. CLONAZEPAM. [Concomitant]
     Active Substance: CLONAZEPAM
     Dosage: 2 MG, QHS  (1X1 HS)
     Route: 048
     Dates: start: 20190625
  13. VITAMIN D [Concomitant]
     Active Substance: VITAMIN D NOS
     Indication: PRODUCT USED FOR UNKNOWN INDICATION
     Dosage: 20000 OT, UNK
     Route: 065
  14. RIVASTIGMINE. [Suspect]
     Active Substance: RIVASTIGMINE
     Indication: PRODUCT USED FOR UNKNOWN INDICATION
     Dosage: 3 MG, BID (1X2PC)
     Route: 048
  15. ENTACAPONE. [Suspect]
     Active Substance: ENTACAPONE
     Dosage: 200 MG, TID (1X1 AT 8,14,20)
     Route: 048
     Dates: start: 201902
  16. RASAGILINE. [Concomitant]
     Active Substance: RASAGILINE
     Dosage: 1 MG, QD (1X1)
     Route: 048
     Dates: start: 201902
  17. RASAGILINE. [Concomitant]
     Active Substance: RASAGILINE
     Dosage: 1 MG, QD (1X1 PC)
     Route: 048
     Dates: start: 20190517
  18. LEVODOPA/CARBIDOPA [Concomitant]
     Active Substance: CARBIDOPA\LEVODOPA
     Indication: PRODUCT USED FOR UNKNOWN INDICATION
     Dosage: 5 DF, QD (1.5  AT 8,14,20)
     Route: 048
     Dates: start: 201902
  19. LEVODOPA BENSERAZIDE [Concomitant]
     Active Substance: BENSERAZIDE\LEVODOPA
     Dosage: 1 DF, QD (AT 22)
     Route: 048
     Dates: start: 20190625
  20. QUININE [Concomitant]
     Active Substance: QUININE
     Dosage: 300 MG, QHS (1X1 HS PRN)
     Route: 048
     Dates: start: 20190625
  21. MEMANTINE. [Concomitant]
     Active Substance: MEMANTINE
     Dosage: 10 MG, BID (1X2 PC)
     Route: 048
     Dates: start: 201903
  22. MEMANTINE. [Concomitant]
     Active Substance: MEMANTINE
     Dosage: 10 MG, BID (1X2 PC)
     Route: 048
     Dates: start: 20190517
  23. MEMANTINE. [Concomitant]
     Active Substance: MEMANTINE
     Dosage: 10 MG, BID  (1X2 PC)
     Route: 048
     Dates: start: 20190625
  24. FLUOXETINE [Concomitant]
     Active Substance: FLUOXETINE HYDROCHLORIDE
     Dosage: 20 MG, QD (1X1 PC)
     Route: 048
     Dates: start: 20190625
  25. ENTACAPONE. [Suspect]
     Active Substance: ENTACAPONE
     Indication: PRODUCT USED FOR UNKNOWN INDICATION
     Dosage: 200 MG, QID (1 TAB AT 8,12,16,20)
     Route: 048
  26. ENTACAPONE. [Suspect]
     Active Substance: ENTACAPONE
     Dosage: 200 MG, QID (1 TAB AT 8,12,16,20)
     Route: 048
     Dates: start: 201903
  27. RASAGILINE. [Concomitant]
     Active Substance: RASAGILINE
     Indication: PRODUCT USED FOR UNKNOWN INDICATION
  28. LEVODOPA/CARBIDOPA [Concomitant]
     Active Substance: CARBIDOPA\LEVODOPA
     Dosage: 5 DF, QD (1.5 TAB AT 8, 12, 1 TAB AT 16, 20)
     Route: 048
     Dates: start: 20190625
  29. LEVODOPA BENSERAZIDE [Concomitant]
     Active Substance: BENSERAZIDE\LEVODOPA
     Indication: PRODUCT USED FOR UNKNOWN INDICATION
     Dosage: 1 DF, QD (AT 20)
     Route: 048
  30. LEVODOPA BENSERAZIDE [Concomitant]
     Active Substance: BENSERAZIDE\LEVODOPA
     Dosage: 1 DF, QD (AT 22)
     Route: 048
     Dates: start: 201902
  31. LEVODOPA BENSERAZIDE [Concomitant]
     Active Substance: BENSERAZIDE\LEVODOPA
     Dosage: 1 DF, QD (AT 22)
     Route: 048
     Dates: start: 20190517
  32. LAMOTRIGINE. [Concomitant]
     Active Substance: LAMOTRIGINE
     Indication: PRODUCT USED FOR UNKNOWN INDICATION
     Dosage: 100 MG, QD
     Route: 048
     Dates: start: 201902
  33. MEMANTINE. [Concomitant]
     Active Substance: MEMANTINE
     Indication: PRODUCT USED FOR UNKNOWN INDICATION
     Dosage: 10 MG, BID (1X2 PC)
     Route: 048
     Dates: start: 201902
  34. CLONAZEPAM. [Concomitant]
     Active Substance: CLONAZEPAM
     Dosage: 2 MG, QHS (1X1 HS)
     Route: 048
     Dates: start: 201903
  35. QUETIAPINE. [Concomitant]
     Active Substance: QUETIAPINE
     Dosage: 1.5 DF, QD (1.5X1 EVENING)
     Route: 048
     Dates: start: 20190625
  36. BETAHISTINE [Concomitant]
     Active Substance: BETAHISTINE
     Indication: PRODUCT USED FOR UNKNOWN INDICATION
     Dosage: 12 OT, UNK
     Route: 065
  37. FLUOXETINE [Concomitant]
     Active Substance: FLUOXETINE HYDROCHLORIDE
     Dosage: 20 MG, QD (1X1 PC)
     Route: 048
     Dates: start: 20190625
  38. VALSARTAN. [Suspect]
     Active Substance: VALSARTAN
     Indication: PRODUCT USED FOR UNKNOWN INDICATION
     Dosage: 80 MG, QD (1X1 PC)
     Route: 048
  39. LEVODOPA/CARBIDOPA [Concomitant]
     Active Substance: CARBIDOPA\LEVODOPA
     Dosage: 4 DF, QD (1.5 TAB AT 8, 12, 1 TAB AT 16, 20)
     Route: 048
     Dates: start: 201903
  40. LEVODOPA/CARBIDOPA [Concomitant]
     Active Substance: CARBIDOPA\LEVODOPA
     Dosage: 5 DF, QD (1.5 TAB AT 8, 12 , 1 TAB AT 16, 20)
     Route: 048
     Dates: start: 20190517
  41. LEVODOPA BENSERAZIDE [Concomitant]
     Active Substance: BENSERAZIDE\LEVODOPA
     Dosage: 1 DF, QD (AT 22)
     Route: 048
     Dates: start: 201903
  42. QUININE [Concomitant]
     Active Substance: QUININE
     Dosage: 300 MG, QHS (1X1 HS PRN)
     Route: 048
     Dates: start: 20190517
  43. LAMOTRIGINE. [Concomitant]
     Active Substance: LAMOTRIGINE
     Dosage: 100 MG, QHS (1X1 HS)
     Route: 048
     Dates: start: 20190517
  44. FLUOXETINE [Concomitant]
     Active Substance: FLUOXETINE HYDROCHLORIDE
     Dosage: 20 MG, QD  (1X1 PC)
     Route: 048
     Dates: start: 20190517
  45. RIVASTIGMINE. [Suspect]
     Active Substance: RIVASTIGMINE
     Dosage: 3 MG, BID (1X2 PC)
     Route: 048
     Dates: start: 201903
  46. ROPINIROLE. [Concomitant]
     Active Substance: ROPINIROLE
     Dosage: 4 MG, QD (1X1 PC)
     Route: 048
     Dates: start: 201903
  47. RIVASTIGMINE. [Suspect]
     Active Substance: RIVASTIGMINE
     Dosage: 3 MG, BID (1X2 PC)
     Route: 048
     Dates: start: 20190625
  48. ATORVASTATIN [Suspect]
     Active Substance: ATORVASTATIN
     Indication: PRODUCT USED FOR UNKNOWN INDICATION
     Dosage: 0.5 DF, QHS
     Route: 048
  49. RASAGILINE. [Concomitant]
     Active Substance: RASAGILINE
     Dosage: 1 MG, QD (1X1 PC)
     Route: 048
     Dates: start: 201903
  50. QUININE [Concomitant]
     Active Substance: QUININE
     Indication: PRODUCT USED FOR UNKNOWN INDICATION
     Dosage: 300 MG, QHS  (1X1 HS PRN)
     Route: 048
     Dates: start: 201903
  51. LAMOTRIGINE. [Concomitant]
     Active Substance: LAMOTRIGINE
     Dosage: 100 MG, QD
     Route: 048
     Dates: start: 201903
  52. CLONAZEPAM. [Concomitant]
     Active Substance: CLONAZEPAM
     Indication: PRODUCT USED FOR UNKNOWN INDICATION
     Dosage: 2 MG, QHS (1X1 HS)
     Route: 048
     Dates: start: 201902

REACTIONS (31)
  - Memory impairment [Unknown]
  - Sleep disorder [Unknown]
  - Depression [Unknown]
  - Delusion [Unknown]
  - Jaw disorder [Unknown]
  - Balance disorder [Unknown]
  - Tremor [Not Recovered/Not Resolved]
  - Poor sucking reflex [Unknown]
  - Protein total decreased [Unknown]
  - Action tremor [Unknown]
  - Movement disorder [Unknown]
  - Sleep deficit [Unknown]
  - Hallucination, visual [Unknown]
  - Postural tremor [Unknown]
  - Palmomental reflex [Unknown]
  - Affective disorder [Recovering/Resolving]
  - Haemoglobin decreased [Unknown]
  - Gait disturbance [Unknown]
  - Intentional self-injury [Unknown]
  - Parkinsonian rest tremor [Unknown]
  - Somnambulism [Unknown]
  - Blood albumin decreased [Unknown]
  - Muscle spasms [Unknown]
  - Bradykinesia [Unknown]
  - Resting tremor [Unknown]
  - Disorientation [Unknown]
  - Limb discomfort [Unknown]
  - Reduced facial expression [Unknown]
  - Parkinsonian gait [Unknown]
  - Irritability [Unknown]
  - Cogwheel rigidity [Unknown]

NARRATIVE: CASE EVENT DATE: 2018
